FAERS Safety Report 4746590-0 (Version None)
Quarter: 2005Q3

REPORT INFORMATION
  Report Type: 
  Country: None (occurrence: None)
  Receive Date: 20050815
  Receipt Date: 20050801
  Transmission Date: 20060218
  Serious: Yes (Other)
  Sender: FDA-Public Use
  Company Number: 2005108885

PATIENT
  Age: 24 Year
  Sex: Female
  Weight: 67.1324 kg

DRUGS (1)
  1. BENADRYL [Suspect]
     Indication: HYPERSENSITIVITY
     Dosage: 2 TABS ONCE DAILY FOR 2 DAYS, ORAL
     Route: 048
     Dates: start: 20050729, end: 20050730

REACTIONS (3)
  - DYSPNOEA [None]
  - HYPOAESTHESIA [None]
  - URTICARIA GENERALISED [None]
